APPROVED DRUG PRODUCT: THIORIDAZINE HYDROCHLORIDE
Active Ingredient: THIORIDAZINE HYDROCHLORIDE
Strength: 150MG
Dosage Form/Route: TABLET;ORAL
Application: A088737 | Product #001
Applicant: SUN PHARMACEUTICAL INDUSTRIES INC
Approved: Sep 26, 1984 | RLD: No | RS: No | Type: DISCN